FAERS Safety Report 18385745 (Version 1)
Quarter: 2020Q4

REPORT INFORMATION
  Report Type: Report from Study
  Country: IT (occurrence: IT)
  Receive Date: 20201015
  Receipt Date: 20201015
  Transmission Date: 20210114
  Serious: Yes (Hospitalization)
  Sender: FDA-Public Use
  Company Number: IT-TEVA-2020-IT-1838102

PATIENT
  Age: 84 Year
  Sex: Male

DRUGS (3)
  1. NORMIX [Concomitant]
     Active Substance: RIFAXIMIN
  2. CLOPIDOGREL [Suspect]
     Active Substance: CLOPIDOGREL BISULFATE
     Dosage: UNIT DOSE : 75 MG
     Route: 048
     Dates: start: 20200101, end: 20200908
  3. ATORVASTATIN [Concomitant]
     Active Substance: ATORVASTATIN
     Dosage: UNIT DOSE  : 20 MG

REACTIONS (1)
  - Rectal haemorrhage [Unknown]

NARRATIVE: CASE EVENT DATE: 20200908
